FAERS Safety Report 6544213-1 (Version None)
Quarter: 2010Q1

REPORT INFORMATION
  Report Type: 
  Country: None (occurrence: None)
  Receive Date: 20100120
  Receipt Date: 20100112
  Transmission Date: 20100710
  Serious: Yes (Hospitalization, Other)
  Sender: FDA-Public Use
  Company Number: US-ABBOTT-09P-163-0616228-00

PATIENT
  Sex: Male

DRUGS (4)
  1. HUMIRA [Suspect]
     Indication: CROHN'S DISEASE
     Route: 050
     Dates: start: 20081101, end: 20081101
  2. HUMIRA [Suspect]
     Route: 050
     Dates: start: 20081101, end: 20081220
  3. HUMIRA [Suspect]
     Route: 050
     Dates: start: 20090201, end: 20090201
  4. HUMIRA [Suspect]
     Route: 050
     Dates: start: 20090201, end: 20090301

REACTIONS (6)
  - ASTHENIA [None]
  - CROHN'S DISEASE [None]
  - INTESTINAL STENOSIS [None]
  - NAUSEA [None]
  - VISION BLURRED [None]
  - VOMITING [None]
